FAERS Safety Report 25035527 (Version 2)
Quarter: 2025Q3

REPORT INFORMATION
  Report Type: Report from Study
  Country: US (occurrence: US)
  Receive Date: 20250304
  Receipt Date: 20250810
  Transmission Date: 20251020
  Serious: Yes (Hospitalization)
  Sender: ALEXION PHARMACEUTICALS
  Company Number: US-AstraZeneca-CH-00814941A

PATIENT
  Sex: Female

DRUGS (3)
  1. EPLONTERSEN SODIUM [Suspect]
     Active Substance: EPLONTERSEN SODIUM
     Indication: Hereditary ATTR amyloid cardiomyopathy
     Dosage: 45 MILLIGRAM, QMONTH
     Dates: start: 20240830
  2. UNSPECIFIED INGREDIENT [Concomitant]
     Active Substance: UNSPECIFIED INGREDIENT
  3. VYNDAMAX [Concomitant]
     Active Substance: TAFAMIDIS
     Route: 065

REACTIONS (1)
  - Infection [Recovering/Resolving]
